FAERS Safety Report 22134984 (Version 1)
Quarter: 2023Q1

REPORT INFORMATION
  Report Type: Spontaneous
  Country: US (occurrence: None)
  Receive Date: 20230323
  Receipt Date: 20230323
  Transmission Date: 20230418
  Serious: Yes (Disabling)
  Sender: FDA-Public Use
  Company Number: None

PATIENT
  Age: 67 Year
  Sex: Female
  Weight: 59.4 kg

DRUGS (6)
  1. PAROXETINE [Suspect]
     Active Substance: PAROXETINE
     Indication: Menopause
     Dosage: OTHER QUANTITY : 1 TABLET(S);?FREQUENCY : DAILY;?
     Route: 048
     Dates: start: 20050205, end: 20230322
  2. PAROXETINE [Suspect]
     Active Substance: PAROXETINE
     Indication: Anxiety
  3. PAROXETINE HYDROCHLORIDE [Concomitant]
     Active Substance: PAROXETINE HYDROCHLORIDE
  4. One a day vitamin [Concomitant]
  5. Vitamin C Calcium [Concomitant]
  6. PROBIOTICS NOS [Concomitant]
     Active Substance: PROBIOTICS NOS

REACTIONS (13)
  - Withdrawal syndrome [None]
  - Drug dependence [None]
  - Palpitations [None]
  - Heart rate increased [None]
  - Blood pressure increased [None]
  - Irritability [None]
  - Insomnia [None]
  - Nightmare [None]
  - Night sweats [None]
  - Hot flush [None]
  - Depression [None]
  - Anxiety [None]
  - Dizziness [None]

NARRATIVE: CASE EVENT DATE: 20230322
